FAERS Safety Report 4319734-2 (Version None)
Quarter: 2004Q1

REPORT INFORMATION
  Report Type: 
  Country: None (occurrence: None)
  Receive Date: 20040316
  Receipt Date: 20040304
  Transmission Date: 20041129
  Serious: Yes (Other)
  Sender: FDA-Public Use
  Company Number: US-JNJFOC-20040106060

PATIENT
  Age: 66 Year
  Sex: Female
  Weight: 68.0396 kg

DRUGS (7)
  1. REMICADE [Suspect]
     Indication: RHEUMATOID ARTHRITIS
     Dosage: 300 MG, INTRAVENOUS
     Route: 042
  2. LIPITOR [Concomitant]
  3. GLYBURIDE [Concomitant]
  4. CITRICAL (CALCIUM CITRATE) [Concomitant]
  5. VITAMINS (VITAMINS) [Concomitant]
  6. TYLENOL [Concomitant]
  7. ACID SUPRESSORS (ANTACIDS) [Concomitant]

REACTIONS (8)
  - COLON CANCER [None]
  - COLONIC POLYP [None]
  - CONSTIPATION [None]
  - DYSPLASIA [None]
  - GASTRITIS EROSIVE [None]
  - HAEMORRHOIDS [None]
  - HYPERPLASIA [None]
  - METASTASIS [None]
